FAERS Safety Report 7581566-X (Version None)
Quarter: 2011Q2

REPORT INFORMATION
  Report Type: 
  Country: None (occurrence: None)
  Receive Date: 20110629
  Receipt Date: 20110622
  Transmission Date: 20111010
  Serious: Yes (Hospitalization, Other)
  Sender: FDA-Public Use
  Company Number: PHEH2007US12178

PATIENT
  Sex: Male
  Weight: 78.912 kg

DRUGS (92)
  1. CALCIUM CARBONATE W/VITAMIN D NOS [Concomitant]
  2. MS CONTIN [Concomitant]
  3. LACTULOSE [Concomitant]
  4. COLACE [Concomitant]
  5. ZANAFLEX [Concomitant]
  6. CENTRUM SILVER [Concomitant]
  7. ACTIQ [Concomitant]
  8. LANTUS [Concomitant]
  9. METFORMIN HCL [Concomitant]
     Dosage: 1500 / BID
  10. NPH INSULIN [Concomitant]
  11. CHLORHEXIDINE GLUCONATE [Concomitant]
  12. METHADONE HCL [Concomitant]
  13. BENADRYL ^ACHE^ [Concomitant]
  14. RADIOTHERAPY [Concomitant]
     Dosage: UNK
     Dates: start: 20040419, end: 20040501
  15. NEURONTIN [Concomitant]
  16. DURAMORPH PF [Concomitant]
  17. PRILOSEC [Concomitant]
  18. SENNA [Concomitant]
  19. CHEMOTHERAPEUTICS NOS [Concomitant]
  20. LOVENOX [Concomitant]
  21. FLUOXETINE HCL [Concomitant]
  22. INSULIN GLARGINE [Concomitant]
  23. NAPROXEN [Concomitant]
  24. LEVAQUIN [Concomitant]
  25. ZOMETA [Suspect]
     Indication: MULTIPLE MYELOMA
     Dosage: 4 MG
     Route: 042
     Dates: start: 20050315, end: 20070601
  26. PERCOCET [Concomitant]
     Dosage: 10/500 / PRN
  27. ASTRAMORPH PF [Concomitant]
  28. LIORESAL [Concomitant]
  29. LIDODERM [Concomitant]
  30. MORPHINE [Concomitant]
  31. THALIDOMIDE [Concomitant]
     Dosage: 200
     Dates: start: 20040617
  32. RIMANTADINE HYDROCHLORIDE [Concomitant]
  33. PREDNISONE [Concomitant]
  34. MAGNESIUM SULFATE [Concomitant]
  35. ALLOPURINOL [Concomitant]
  36. ALKERAN [Suspect]
  37. GLIPIZIDE [Concomitant]
  38. DURAGESIC-100 [Concomitant]
     Dosage: 200
     Dates: start: 20040519
  39. B-COMPLEX ^KRKA^ [Concomitant]
  40. SENOKOT                                 /UNK/ [Concomitant]
  41. ROXANOL [Concomitant]
     Dosage: UNK
  42. LISINOPRIL [Concomitant]
  43. DILAUDID [Concomitant]
  44. LOVAZA [Concomitant]
  45. LOPERAMIDE [Concomitant]
  46. MAXIPIME [Concomitant]
  47. VITAMIN TAB [Concomitant]
  48. REGLAN [Concomitant]
  49. TIZANIDINE HCL [Concomitant]
  50. DULCOLAX [Concomitant]
  51. BACLOFEN [Concomitant]
  52. PROTONIX [Concomitant]
  53. FLEXERIL [Concomitant]
  54. ENALAPRIL MALEATE [Concomitant]
  55. FLUTICASONE PROPIONATE [Concomitant]
  56. MIRTAZAPINE [Concomitant]
  57. BACTRIM [Concomitant]
  58. PENICILLIN ^GRUNENTHAL^ [Concomitant]
  59. ATIVAN [Concomitant]
  60. MAALOX                                  /NET/ [Concomitant]
  61. OXYCONTIN [Concomitant]
     Dosage: 20 MG / EVERY 12 HRS
     Dates: start: 20040409
  62. MIRALAX [Concomitant]
  63. RADIATION THERAPY [Concomitant]
  64. ATENOLOL [Concomitant]
  65. ACTOS [Concomitant]
     Dosage: 15 / QD
  66. AMBIEN [Concomitant]
  67. ACETAMINOPHEN AND HYDROCODONE BITARTRATE [Concomitant]
  68. GABAPENTIN [Concomitant]
  69. FENTANYL [Concomitant]
  70. NOVOLOG [Concomitant]
  71. CATHFLO ACTIVASE [Concomitant]
  72. ZOFRAN [Concomitant]
  73. GLUCOPHAGE [Concomitant]
  74. INSULIN HUMAN [Concomitant]
  75. DURAGESIC-100 [Concomitant]
     Dosage: UNK
     Dates: end: 20040519
  76. MORPHINE SULFATE [Concomitant]
  77. GLYBURIDE [Concomitant]
  78. DEXAMETHASONE [Concomitant]
     Dosage: 4 / Q12
     Dates: start: 20040519
  79. PEPCID [Concomitant]
  80. SULFAMETHOXAZOLE AND TRIMETHOPRIM [Concomitant]
  81. ACYCLOVIR [Concomitant]
  82. PRAVASTATIN [Concomitant]
  83. AMOXICILLIN [Concomitant]
  84. DIFLUCAN [Concomitant]
  85. FLAGYL ^RHONE-POULENC RORER^ [Concomitant]
  86. MICRO-K [Concomitant]
     Dosage: UNK
  87. ZESTRIL [Concomitant]
  88. TENORMIN [Concomitant]
  89. ZANTAC [Concomitant]
  90. PIOGLITAZONE [Concomitant]
  91. DEXAMETHASONE [Concomitant]
     Dosage: 4 / Q6
     Dates: end: 20040519
  92. TYLENOL-500 [Concomitant]

REACTIONS (50)
  - LIFE EXPECTANCY SHORTENED [None]
  - INGUINAL HERNIA [None]
  - PROSTATE CANCER [None]
  - COUGH [None]
  - DEFORMITY [None]
  - EMOTIONAL DISTRESS [None]
  - ANHEDONIA [None]
  - INTERVERTEBRAL DISC DEGENERATION [None]
  - OSTEOARTHRITIS [None]
  - ARTHROPATHY [None]
  - SPONDYLITIS [None]
  - HAEMATOCHEZIA [None]
  - WHITE BLOOD CELL COUNT DECREASED [None]
  - NEURALGIA [None]
  - BALANCE DISORDER [None]
  - PAIN [None]
  - INJURY [None]
  - PLEURAL FIBROSIS [None]
  - SCIATICA [None]
  - DEPRESSION [None]
  - FAILURE TO THRIVE [None]
  - OSTEOPOROSIS [None]
  - LIGHT CHAIN ANALYSIS INCREASED [None]
  - GLAUCOMA [None]
  - EPSTEIN-BARR VIRUS ANTIBODY POSITIVE [None]
  - HYPOPHAGIA [None]
  - ANXIETY [None]
  - ARTHRALGIA [None]
  - NEUTROPHIL COUNT DECREASED [None]
  - RENAL FAILURE [None]
  - DECREASED APPETITE [None]
  - DYSURIA [None]
  - RASH PRURITIC [None]
  - INTERVERTEBRAL DISC PROTRUSION [None]
  - SPINAL COLUMN STENOSIS [None]
  - MYELITIS TRANSVERSE [None]
  - MUCOSAL INFLAMMATION [None]
  - EXOSTOSIS [None]
  - BETA 2 MICROGLOBULIN INCREASED [None]
  - GAIT DISTURBANCE [None]
  - DISCOMFORT [None]
  - NEOPLASM MALIGNANT [None]
  - HERPES SIMPLEX SEROLOGY POSITIVE [None]
  - OSTEONECROSIS OF JAW [None]
  - POST LAMINECTOMY SYNDROME [None]
  - MYOFASCIAL PAIN SYNDROME [None]
  - SCROTAL IRRITATION [None]
  - FATIGUE [None]
  - INFECTION [None]
  - TOXOPLASMA SEROLOGY POSITIVE [None]
